FAERS Safety Report 11920176 (Version 1)
Quarter: 2016Q1

REPORT INFORMATION
  Report Type: Spontaneous
  Country: US (occurrence: US)
  Receive Date: 20160115
  Receipt Date: 20160115
  Transmission Date: 20160526
  Serious: No
  Sender: FDA-Public Use
  Company Number: US-BAYER-2016-006225

PATIENT
  Age: 44 Year
  Sex: Female

DRUGS (2)
  1. MIRENA [Suspect]
     Active Substance: LEVONORGESTREL
     Indication: UTERINE LEIOMYOMA
     Dosage: 20 MCG/24HR, CONT
     Route: 015
     Dates: start: 2010, end: 2015
  2. MIRENA [Suspect]
     Active Substance: LEVONORGESTREL
     Indication: MIGRAINE
     Dosage: 20 MCG/24HR, CONT
     Route: 015
     Dates: start: 2015

REACTIONS (18)
  - Syncope [None]
  - Dysstasia [None]
  - Arthralgia [None]
  - Blood pressure decreased [None]
  - Disorientation [None]
  - Metrorrhagia [None]
  - Ovarian cyst [None]
  - Sciatica [Not Recovered/Not Resolved]
  - Tendon discomfort [None]
  - Amenorrhoea [None]
  - Presyncope [None]
  - Confusional state [None]
  - Ovarian cyst [None]
  - Off label use of device [None]
  - Hyperventilation [None]
  - Sciatica [None]
  - Presyncope [None]
  - Amenorrhoea [None]

NARRATIVE: CASE EVENT DATE: 2010
